FAERS Safety Report 23142017 (Version 3)
Quarter: 2024Q4

REPORT INFORMATION
  Report Type: Spontaneous
  Country: US (occurrence: US)
  Receive Date: 20231103
  Receipt Date: 20241215
  Transmission Date: 20250115
  Serious: No
  Sender: SUNOVION
  Company Number: US-MYOVANT SCIENCES GMBH-2023MYSCI1000226

PATIENT

DRUGS (3)
  1. ORGOVYX [Suspect]
     Active Substance: RELUGOLIX
     Indication: Prostate cancer
     Dosage: 120 MILLIGRAM, QD
     Route: 048
  2. ORGOVYX [Suspect]
     Active Substance: RELUGOLIX
     Indication: Bone cancer
  3. MULTIVITAMIN                       /07504101/ [Concomitant]
     Indication: Supplementation therapy
     Dosage: UNK, QD
     Route: 048

REACTIONS (6)
  - Oedema peripheral [Not Recovered/Not Resolved]
  - Hypoaesthesia [Unknown]
  - Abdominal distension [Unknown]
  - Pain in extremity [Unknown]
  - Weight increased [Unknown]
  - Off label use [Unknown]
